FAERS Safety Report 11174620 (Version 1)
Quarter: 2015Q2

REPORT INFORMATION
  Report Type: Spontaneous
  Country: US (occurrence: None)
  Receive Date: 20150608
  Receipt Date: 20150608
  Transmission Date: 20150821
  Serious: No
  Sender: FDA-Public Use
  Company Number: None

PATIENT
  Age: 64 Year
  Sex: Male

DRUGS (11)
  1. MELOXICAM. [Concomitant]
     Active Substance: MELOXICAM
  2. LIDOCAINE 1% [Suspect]
     Active Substance: LIDOCAINE
  3. MARCAINE [Suspect]
     Active Substance: BUPIVACAINE HYDROCHLORIDE
  4. NORCO [Concomitant]
     Active Substance: ACETAMINOPHEN\HYDROCODONE BITARTRATE
  5. IBUPROFEN. [Concomitant]
     Active Substance: IBUPROFEN
  6. MULTIVITAMIN [Concomitant]
     Active Substance: VITAMINS
  7. RIVAROXABAN [Concomitant]
     Active Substance: RIVAROXABAN
  8. GABAPENTIN. [Concomitant]
     Active Substance: GABAPENTIN
  9. METHYLPREDNISOLONE SODIUM SUCCINATE. [Suspect]
     Active Substance: METHYLPREDNISOLONE SODIUM SUCCINATE
     Indication: BURSITIS
     Dates: start: 20150527
  10. ASPIRIN. [Concomitant]
     Active Substance: ASPIRIN
  11. SIMVASTATIN. [Concomitant]
     Active Substance: SIMVASTATIN

REACTIONS (5)
  - Injection site necrosis [None]
  - Arthritis bacterial [None]
  - Injection site pain [None]
  - Injection site abscess [None]
  - Injection site discharge [None]

NARRATIVE: CASE EVENT DATE: 20150527
